FAERS Safety Report 4844816-6 (Version None)
Quarter: 2005Q4

REPORT INFORMATION
  Report Type: 
  Country: None (occurrence: None)
  Receive Date: 20051205
  Receipt Date: 20051125
  Transmission Date: 20060501
  Serious: Yes (Death, Hospitalization)
  Sender: FDA-Public Use
  Company Number: JP-JNJFOC-20050703862

PATIENT

DRUGS (1)
  1. DUROTEP [Suspect]
     Indication: CANCER PAIN
     Dosage: 1/2 AREA OF A 2.5 MG PATCH
     Route: 062

REACTIONS (2)
  - PANCREATIC CARCINOMA [None]
  - TREMOR [None]
